FAERS Safety Report 14578689 (Version 1)
Quarter: 2018Q1

REPORT INFORMATION
  Report Type: Spontaneous
  Country: GR (occurrence: GR)
  Receive Date: 20180227
  Receipt Date: 20180227
  Transmission Date: 20180509
  Serious: Yes (Other)
  Sender: FDA-Public Use
  Company Number: GR-BIOMARINAP-GR-2018-117209

PATIENT
  Sex: Male

DRUGS (2)
  1. VIMIZIM [Suspect]
     Active Substance: ELOSULFASE ALFA
     Indication: MUCOPOLYSACCHARIDOSIS IV
     Dosage: 130 MG, UNK
     Route: 042
  2. XOZAL [Concomitant]
     Active Substance: LEVOCETIRIZINE
     Indication: PREMEDICATION
     Dosage: 10 MG, UNK

REACTIONS (2)
  - Enlarged uvula [Recovering/Resolving]
  - Dyspnoea [Recovering/Resolving]
